FAERS Safety Report 5117061-7 (Version None)
Quarter: 2006Q3

REPORT INFORMATION
  Report Type: 
  Country: None (occurrence: None)
  Receive Date: 20060925
  Receipt Date: 20060912
  Transmission Date: 20061208
  Serious: Yes (Other)
  Sender: FDA-Public Use
  Company Number: 2006111068

PATIENT
  Sex: Female

DRUGS (2)
  1. DOSTINEX [Suspect]
     Indication: LACTATION DISORDER
     Dosage: 0.25 MG (0.25 MG, 1 IN 1 D), ORAL
     Route: 048
  2. ESTRADIOL [Concomitant]

REACTIONS (7)
  - BLOOD PRESSURE FLUCTUATION [None]
  - HEADACHE [None]
  - HEART RATE DECREASED [None]
  - MALAISE [None]
  - MUSCULAR WEAKNESS [None]
  - SEDATION [None]
  - VISUAL DISTURBANCE [None]
